FAERS Safety Report 6257218-5 (Version None)
Quarter: 2009Q3

REPORT INFORMATION
  Report Type: 
  Country: None (occurrence: None)
  Receive Date: 20090706
  Receipt Date: 20090629
  Transmission Date: 20100115
  Serious: Yes (Other)
  Sender: FDA-Public Use
  Company Number: DE-AMGEN-QUU353479

PATIENT
  Sex: Female

DRUGS (1)
  1. NEULASTA [Suspect]
     Indication: DRUG USE FOR UNKNOWN INDICATION
     Route: 065
     Dates: start: 20090627

REACTIONS (6)
  - AGITATION [None]
  - FEAR [None]
  - NAUSEA [None]
  - NERVOUS SYSTEM DISORDER [None]
  - TACHYCARDIA [None]
  - VOMITING [None]
